FAERS Safety Report 22266680 (Version 1)
Quarter: 2023Q2

REPORT INFORMATION
  Report Type: Spontaneous
  Country: CN (occurrence: None)
  Receive Date: 20230428
  Receipt Date: 20230428
  Transmission Date: 20230721
  Serious: Yes (Hospitalization)
  Sender: FDA-Public Use
  Company Number: CN-ROCHE-3338730

PATIENT
  Age: 59 Year
  Sex: Male
  Weight: 68.5 kg

DRUGS (3)
  1. BRIGATINIB [Suspect]
     Active Substance: BRIGATINIB
     Indication: Lung neoplasm malignant
     Route: 048
     Dates: start: 20230322, end: 20230407
  2. ALECENSA [Suspect]
     Active Substance: ALECTINIB HYDROCHLORIDE
     Indication: Lung neoplasm malignant
     Route: 048
     Dates: start: 20220420, end: 20230309
  3. ENSARTINIB HYDROCHLORIDE [Concomitant]
     Indication: Lung neoplasm malignant
     Route: 048
     Dates: start: 20230419

REACTIONS (1)
  - Blood creatine phosphokinase increased [Recovering/Resolving]

NARRATIVE: CASE EVENT DATE: 20220524
